FAERS Safety Report 20825564 (Version 1)
Quarter: 2022Q2

REPORT INFORMATION
  Report Type: Spontaneous
  Country: US (occurrence: US)
  Receive Date: 20220513
  Receipt Date: 20220513
  Transmission Date: 20220721
  Serious: No
  Sender: FDA-Public Use
  Company Number: US-BRISTOL-MYERS SQUIBB COMPANY-2022-023468

PATIENT
  Age: 77 Year
  Sex: Male

DRUGS (12)
  1. REVLIMID [Suspect]
     Active Substance: LENALIDOMIDE
     Indication: Plasma cell myeloma
     Dosage: TAKEN 1 CAPSULE BY MOUTH DAILY ON DAYS 1-21, THEN 7 DAYS OFF AS INSTRUCTED. TAKE WHOLE WITH OR?WITHO
     Route: 048
     Dates: start: 20220310
  2. DEXAMETHASONE [Concomitant]
     Active Substance: DEXAMETHASONE
  3. VITAMINS [Concomitant]
     Active Substance: VITAMINS
  4. LISINOPRIL [Concomitant]
     Active Substance: LISINOPRIL
  5. ACYCLOVIR [Concomitant]
     Active Substance: ACYCLOVIR
  6. ALLOPURINOL [Concomitant]
     Active Substance: ALLOPURINOL
  7. ASPIRIN [Concomitant]
     Active Substance: ASPIRIN
  8. ATORVASTATIN [Concomitant]
     Active Substance: ATORVASTATIN
  9. FERROUS SULFATE [Concomitant]
     Active Substance: FERROUS SULFATE
  10. FUROSEMIDE [Concomitant]
     Active Substance: FUROSEMIDE
  11. GEMFIBROZIL [Concomitant]
     Active Substance: GEMFIBROZIL
  12. OMEPRAZOLE [Concomitant]
     Active Substance: OMEPRAZOLE

REACTIONS (2)
  - Diarrhoea [Unknown]
  - Hepatic enzyme abnormal [Unknown]
